FAERS Safety Report 4400767-2 (Version None)
Quarter: 2004Q3

REPORT INFORMATION
  Report Type: 
  Country: None (occurrence: None)
  Receive Date: 20040907
  Receipt Date: 20030502
  Transmission Date: 20050211
  Serious: No
  Sender: FDA-Public Use
  Company Number: US-BRISTOL-MYERS SQUIBB COMPANY-12262705

PATIENT
  Age: 69 Year
  Sex: Female
  Weight: 66 kg

DRUGS (11)
  1. COUMADIN [Suspect]
     Indication: CARDIAC DISORDER
     Dosage: 2MG / INCREASED 5MG AND 2.5MG ALTERNATING.
     Route: 048
     Dates: end: 20030502
  2. VASOTEC [Concomitant]
  3. ZOCOR [Concomitant]
  4. ZETIA [Concomitant]
  5. VIVELLE [Concomitant]
  6. MEDROXYPROGESTERONE ACETATE [Concomitant]
  7. COLACE [Concomitant]
  8. FOLIC ACID [Concomitant]
  9. CALCIUM [Concomitant]
  10. PROVERA [Concomitant]
  11. CENTRUM [Concomitant]
     Dosage: ^WITH VITAMIN K^

REACTIONS (1)
  - INTERNATIONAL NORMALISED RATIO ABNORMAL [None]
